FAERS Safety Report 24791872 (Version 1)
Quarter: 2024Q4

REPORT INFORMATION
  Report Type: Spontaneous
  Country: US (occurrence: US)
  Receive Date: 20241231
  Receipt Date: 20241231
  Transmission Date: 20250115
  Serious: Yes (Other)
  Sender: CIPLA
  Company Number: US-MLMSERVICE-20241212-PI296680-00203-1

PATIENT

DRUGS (3)
  1. LISINOPRIL [Suspect]
     Active Substance: LISINOPRIL
     Indication: Proteinuria
     Dosage: UNK
     Route: 065
     Dates: start: 2022, end: 2022
  2. CHOLECALCIFEROL [Concomitant]
     Active Substance: CHOLECALCIFEROL
     Indication: Chronic kidney disease
     Dosage: UNK
     Route: 065
     Dates: start: 2022
  3. CALCITRIOL [Concomitant]
     Active Substance: CALCITRIOL
     Indication: Chronic kidney disease
     Dosage: UNK
     Route: 065
     Dates: start: 2022

REACTIONS (2)
  - Renal impairment [Recovered/Resolved]
  - Condition aggravated [Recovered/Resolved]

NARRATIVE: CASE EVENT DATE: 20220101
